FAERS Safety Report 8953986 (Version 2)
Quarter: 2014Q2

REPORT INFORMATION
  Report Type: Spontaneous
  Country: GB (occurrence: GB)
  Receive Date: 20121206
  Receipt Date: 20140620
  Transmission Date: 20141212
  Serious: Yes (Hospitalization)
  Sender: FDA-Public Use
  Company Number: GB-WATSON-2012-21348

PATIENT
  Age: 77 Year
  Sex: Male

DRUGS (1)
  1. CO-TRIMOXAZOLE [Suspect]
     Indication: NOCARDIOSIS
     Dosage: UNK UNK, BID
     Route: 048
     Dates: start: 201210, end: 20121105

REACTIONS (1)
  - Hyponatraemia [Recovering/Resolving]
